FAERS Safety Report 5562883-1 (Version None)
Quarter: 2007Q4

REPORT INFORMATION
  Report Type: 
  Country: None (occurrence: None)
  Receive Date: 20071212
  Receipt Date: 20071212
  Transmission Date: 20080405
  Serious: No
  Sender: FDA-Public Use
  Company Number: None

PATIENT
  Age: 31 Year
  Sex: Male
  Weight: 93.4 kg

DRUGS (1)
  1. INVANZ [Suspect]
     Indication: INFECTION
     Dosage: 1GM EVERY 24 HOURS IV
     Route: 042
     Dates: start: 20071207, end: 20071208

REACTIONS (1)
  - DRUG HYPERSENSITIVITY [None]
